FAERS Safety Report 21342856 (Version 1)
Quarter: 2022Q3

REPORT INFORMATION
  Report Type: Spontaneous
  Country: US (occurrence: US)
  Receive Date: 20220916
  Receipt Date: 20220916
  Transmission Date: 20221026
  Serious: Yes (Death, Hospitalization, Other)
  Sender: FDA-Public Use
  Company Number: US-ORG100016242-2022002408

PATIENT

DRUGS (14)
  1. EXPAREL [Suspect]
     Active Substance: BUPIVACAINE
     Indication: Postoperative analgesia
     Dosage: NOT PROVIDED
  2. MORPHINE [Concomitant]
     Active Substance: MORPHINE
     Indication: Preoperative care
     Route: 037
  3. ACETAMINOPHEN [Concomitant]
     Active Substance: ACETAMINOPHEN
     Indication: Preoperative care
     Dosage: 1 H BEFORE SURGERY
  4. ACETAMINOPHEN [Concomitant]
     Active Substance: ACETAMINOPHEN
     Indication: Preoperative care
     Route: 048
  5. GABAPENTIN [Concomitant]
     Active Substance: GABAPENTIN
     Indication: Preoperative care
     Dosage: 1 H BEFORE SURGERY
  6. GABAPENTIN [Concomitant]
     Active Substance: GABAPENTIN
     Indication: Preoperative care
     Route: 048
  7. CEFAZOLIN [Concomitant]
     Active Substance: CEFAZOLIN
     Indication: Intraoperative care
     Dosage: 2-3 GRAM
  8. VANCOMYCIN [Concomitant]
     Active Substance: VANCOMYCIN
     Indication: Intraoperative care
  9. ONDANSETRON [Concomitant]
     Active Substance: ONDANSETRON
     Indication: Intraoperative care
     Dosage: NOT PROVIDED
  10. DEXAMETHASONE [Concomitant]
     Active Substance: DEXAMETHASONE
     Indication: Intraoperative care
     Dosage: NOT PROVIDED
  11. TRAMADOL [Concomitant]
     Active Substance: TRAMADOL
     Indication: Postoperative care
     Dosage: 50-100 MG Q6H PRN
     Route: 048
  12. TRAMADOL [Concomitant]
     Active Substance: TRAMADOL
     Indication: Postoperative care
     Dosage: 50-100 MG Q6H PRN FOR 7 DAYS
     Route: 048
  13. OXYCODONE [Concomitant]
     Active Substance: OXYCODONE
     Indication: Postoperative care
     Dosage: 5-10 Q4H PRN
     Route: 048
  14. OXYCODONE [Concomitant]
     Active Substance: OXYCODONE
     Indication: Postoperative care
     Dosage: 5 MG Q6H PRN FOR 7 DAYS
     Route: 048

REACTIONS (14)
  - Death [Fatal]
  - Hospitalisation [Unknown]
  - Myocardial infarction [Unknown]
  - Pleural effusion [Unknown]
  - Postoperative wound infection [Unknown]
  - Therapeutic procedure [Unknown]
  - Atelectasis [Unknown]
  - Chest tube insertion [Unknown]
  - Red blood cell transfusion [Unknown]
  - Arrhythmia supraventricular [Unknown]
  - Respiratory failure [Unknown]
  - Pneumonia [Unknown]
  - Post procedural complication [Unknown]
  - Pulmonary air leakage [Unknown]
